FAERS Safety Report 8743683 (Version 2)
Quarter: 2012Q4

REPORT INFORMATION
  Report Type: 
  Country: US (occurrence: US)
  Receive Date: 20120824
  Receipt Date: 20120828
  Transmission Date: 20130627
  Serious: Yes (Other)
  Sender: FDA-Public Use
  Company Number: US-PFIZER INC-2012106264

PATIENT
  Age: 36 Year
  Sex: Female
  Weight: 99.77 kg

DRUGS (3)
  1. ROBITUSSIN PEAK COLD MULTI-SYMPTOM COLD [Suspect]
     Indication: NASOPHARYNGITIS
     Dosage: UNK, once a day
     Route: 048
     Dates: start: 20120427, end: 20120429
  2. ROBITUSSIN PEAK COLD MULTI-SYMPTOM COLD [Suspect]
     Dosage: UNK
  3. ROBITUSSIN PEAK COLD MULTI-SYMPTOM COLD [Suspect]
     Dosage: UNK
     Route: 048
     Dates: start: 2012

REACTIONS (5)
  - Generalised erythema [Recovered/Resolved]
  - Swelling [Recovering/Resolving]
  - Oedema peripheral [Recovering/Resolving]
  - Malaise [Unknown]
  - Impaired work ability [Unknown]
